FAERS Safety Report 8366480-4 (Version None)
Quarter: 2012Q2

REPORT INFORMATION
  Report Type: 
  Country: None (occurrence: None)
  Receive Date: 20120517
  Receipt Date: 20120508
  Transmission Date: 20120825
  Serious: Yes (Disabling)
  Sender: FDA-Public Use
  Company Number: GB-PERRIGO-12GB003980

PATIENT
  Sex: Male

DRUGS (1)
  1. NICOTINE 12063/0068 2 MG [Suspect]
     Indication: PRODUCT USED FOR UNKNOWN INDICATION
     Dosage: UNK
     Route: 048
     Dates: start: 20120116

REACTIONS (1)
  - LOSS OF LIBIDO [None]
